FAERS Safety Report 16692200 (Version 2)
Quarter: 2019Q3

REPORT INFORMATION
  Report Type: Spontaneous
  Country: FR (occurrence: FR)
  Receive Date: 20190812
  Receipt Date: 20190823
  Transmission Date: 20191004
  Serious: Yes (Other)
  Sender: FDA-Public Use
  Company Number: FR-STRIDES ARCOLAB LIMITED-2019SP007508

PATIENT
  Age: 55 Year
  Sex: Male

DRUGS (5)
  1. TACROLIMUS. [Suspect]
     Active Substance: TACROLIMUS
     Indication: IMMUNOSUPPRESSANT DRUG THERAPY
     Dosage: UNK (LOW DOSE)
     Route: 065
  2. AMLODIPINE [Suspect]
     Active Substance: AMLODIPINE BESYLATE
     Indication: PRODUCT USED FOR UNKNOWN INDICATION
     Dosage: 10 MG PER DAY
     Route: 065
  3. EVEROLIMUS. [Suspect]
     Active Substance: EVEROLIMUS
     Indication: IMMUNOSUPPRESSANT DRUG THERAPY
     Dosage: UNK (LOW DOSE)
     Route: 065
  4. TACROLIMUS. [Suspect]
     Active Substance: TACROLIMUS
     Indication: RENAL TRANSPLANT
  5. EVEROLIMUS. [Suspect]
     Active Substance: EVEROLIMUS
     Indication: RENAL TRANSPLANT

REACTIONS (9)
  - Oedema peripheral [Unknown]
  - Renal tubular acidosis [Recovered/Resolved]
  - Metabolic acidosis [Recovered/Resolved]
  - Fluid overload [Recovered/Resolved]
  - Hyperkalaemia [Recovered/Resolved]
  - Hypertension [Unknown]
  - Drug ineffective [Unknown]
  - Pseudohypoaldosteronism [Recovered/Resolved]
  - Sodium retention [Recovered/Resolved]
